FAERS Safety Report 24298495 (Version 1)
Quarter: 2024Q3

REPORT INFORMATION
  Report Type: Report from Study
  Country: JP (occurrence: JP)
  Receive Date: 20240909
  Receipt Date: 20240909
  Transmission Date: 20241016
  Serious: Yes (Death)
  Sender: SHIONOGI
  Company Number: JP-shionogi-202406918_FTR_P_1

PATIENT

DRUGS (1)
  1. FETROJA [Suspect]
     Active Substance: CEFIDEROCOL SULFATE TOSYLATE
     Indication: Sepsis
     Dosage: 1.5 G, QD
     Route: 041
     Dates: start: 20240621, end: 20240705

REACTIONS (1)
  - Endocarditis [Fatal]
